FAERS Safety Report 25910762 (Version 1)
Quarter: 2025Q4

REPORT INFORMATION
  Report Type: Spontaneous
  Country: US (occurrence: US)
  Receive Date: 20251013
  Receipt Date: 20251013
  Transmission Date: 20260117
  Serious: No
  Sender: BRISTOL-MYERS SQUIBB COMPANY
  Company Number: US-BRISTOL-MYERS SQUIBB COMPANY-2025-139266

PATIENT
  Age: 63 Year
  Sex: Female

DRUGS (2)
  1. REVLIMID [Suspect]
     Active Substance: LENALIDOMIDE
     Indication: Plasma cell myeloma
     Dosage: FREQUENCY: 1 DAILY FOR 3 WEEKS ON AND 1 WEEK OFF
     Dates: start: 20241121
  2. REVLIMID [Suspect]
     Active Substance: LENALIDOMIDE
     Dosage: FREQUENCY: 1 DAILY FOR 3 WEEKS ON AND 1 WEEK OFF, STRENGTH: 15 MG
     Dates: start: 20250215

REACTIONS (2)
  - Illness [Unknown]
  - Off label use [Unknown]
